FAERS Safety Report 8620028-5 (Version None)
Quarter: 2012Q3

REPORT INFORMATION
  Report Type: 
  Country: None (occurrence: None)
  Receive Date: 20120824
  Receipt Date: 20120821
  Transmission Date: 20120928
  Serious: Yes (Other)
  Sender: FDA-Public Use
  Company Number: PHEH2012US016497

PATIENT
  Sex: Female

DRUGS (1)
  1. ILARIS [Suspect]
     Dosage: 150 MG, Q8W

REACTIONS (7)
  - PAIN IN EXTREMITY [None]
  - HYPOKINESIA [None]
  - CHEST PAIN [None]
  - ARTHRALGIA [None]
  - ENURESIS [None]
  - URTICARIA [None]
  - PYREXIA [None]
